FAERS Safety Report 12419689 (Version 1)
Quarter: 2016Q2

REPORT INFORMATION
  Report Type: Spontaneous
  Country: FR (occurrence: FR)
  Receive Date: 20160531
  Receipt Date: 20160531
  Transmission Date: 20160815
  Serious: Yes (Hospitalization, Other)
  Sender: FDA-Public Use
  Company Number: FR-GLAXOSMITHKLINE-FR2016GSK076383

PATIENT
  Age: 32 Year
  Sex: Female
  Weight: 52 kg

DRUGS (10)
  1. MIANSERIN [Suspect]
     Active Substance: MIANSERIN
     Indication: SUICIDE ATTEMPT
     Dosage: 2640 MG, SINGLE, 44 TABLETS, 60 MG
     Route: 048
     Dates: start: 20160420, end: 20160420
  2. TERALITHE [Suspect]
     Active Substance: LITHIUM CARBONATE
     Indication: SUICIDE ATTEMPT
     Dosage: 26 G, SINGLE, 65 TABLETS
     Route: 048
     Dates: start: 20160420, end: 20160420
  3. ANAFRANIL [Suspect]
     Active Substance: CLOMIPRAMINE HYDROCHLORIDE
     Indication: SUICIDE ATTEMPT
     Dosage: 500 MG, SINGLE, 25 MG,  20 TABLETS
     Route: 048
     Dates: start: 20160420, end: 20160420
  4. DIAZEPAM. [Suspect]
     Active Substance: DIAZEPAM
     Indication: SUICIDE ATTEMPT
     Dosage: 600 MG, SINGLE, 10 MG, 60 TABLETS
     Route: 048
     Dates: start: 20160420, end: 20160420
  5. CIRCADIN [Concomitant]
     Active Substance: MELATONIN
     Indication: PRODUCT USED FOR UNKNOWN INDICATION
     Dosage: 4 MG, QD, TWO TABLETS IN THE EVENING
  6. SERESTA [Suspect]
     Active Substance: OXAZEPAM
     Indication: SUICIDE ATTEMPT
     Dosage: 1000 MG, SINGLE, 20 TABLETS, 50MG
     Route: 048
     Dates: start: 20160420, end: 20160420
  7. TERCIAN [Suspect]
     Active Substance: CYAMEMAZINE
     Indication: SUICIDE ATTEMPT
     Dosage: 500 MG, SINGLE, 25 MG, 20 TABLETS
     Route: 048
     Dates: start: 20160420, end: 20160420
  8. VENLAFAXINE [Suspect]
     Active Substance: VENLAFAXINE HYDROCHLORIDE
     Indication: SUICIDE ATTEMPT
     Dosage: 6600 MG, SINGLE, 75MG, 88 TABLETS
     Route: 048
     Dates: start: 20160420, end: 20160420
  9. NORSET [Suspect]
     Active Substance: MIRTAZAPINE
     Indication: SUICIDE ATTEMPT
     Dosage: 300 MG, SINGLE, 15 MG, 20 TABLETS
     Route: 048
     Dates: start: 20160420, end: 20160420
  10. LAMICTAL [Suspect]
     Active Substance: LAMOTRIGINE
     Indication: SUICIDE ATTEMPT
     Dosage: 500 MG, SINGLE, 20 TABLETS
     Route: 048
     Dates: start: 20160420, end: 20160420

REACTIONS (5)
  - Coma [Recovered/Resolved]
  - Bundle branch block right [Unknown]
  - Factor V deficiency [Recovered/Resolved]
  - Hepatic function abnormal [Recovered/Resolved]
  - Toxicity to various agents [Unknown]

NARRATIVE: CASE EVENT DATE: 201604
